FAERS Safety Report 6132482-1 (Version None)
Quarter: 2009Q1

REPORT INFORMATION
  Report Type: 
  Country: None (occurrence: None)
  Receive Date: 20090325
  Receipt Date: 20090313
  Transmission Date: 20090719
  Serious: Yes (Other)
  Sender: FDA-Public Use
  Company Number: GB-GILEAD-2009-0021089

PATIENT

DRUGS (3)
  1. VIREAD [Suspect]
     Indication: HIV INFECTION
  2. LOPINAVIR AND RITONAVIR [Concomitant]
     Indication: HIV INFECTION
  3. DIDANOSINE [Concomitant]
     Indication: HIV INFECTION

REACTIONS (4)
  - FANCONI SYNDROME ACQUIRED [None]
  - HYPOCALCAEMIA [None]
  - RENAL TUBULAR DISORDER [None]
  - TETANY [None]
